FAERS Safety Report 7284879-4 (Version None)
Quarter: 2011Q1

REPORT INFORMATION
  Report Type: 
  Country: None (occurrence: None)
  Receive Date: 20110204
  Receipt Date: 20110204
  Transmission Date: 20110831
  Serious: No
  Sender: FDA-Public Use
  Company Number: None

PATIENT
  Age: 83 Year
  Sex: Male
  Weight: 71.6683 kg

DRUGS (1)
  1. EXFORGE [Suspect]
     Indication: HYPERTENSION
     Dosage: 1 TABLET DAILYT PO
     Route: 048
     Dates: start: 20110112, end: 20110115

REACTIONS (4)
  - DEPRESSION [None]
  - FEELING ABNORMAL [None]
  - VERTIGO [None]
  - SUICIDAL IDEATION [None]
